FAERS Safety Report 8220481-5 (Version None)
Quarter: 2012Q1

REPORT INFORMATION
  Report Type: 
  Country: None (occurrence: None)
  Receive Date: 20120320
  Receipt Date: 20120309
  Transmission Date: 20120608
  Serious: Yes (Hospitalization, Other)
  Sender: FDA-Public Use
  Company Number: US-BAYER-2012-025381

PATIENT
  Sex: Female

DRUGS (1)
  1. YASMIN [Suspect]
     Indication: ACNE
     Dosage: UNK
     Dates: start: 20040101

REACTIONS (15)
  - GALLBLADDER DISORDER [None]
  - UTERINE PAIN [None]
  - UTERINE CYST [None]
  - PAIN [None]
  - MENSTRUATION IRREGULAR [None]
  - APPENDICITIS [None]
  - HEADACHE [None]
  - DYSPNOEA [None]
  - PROCEDURAL PAIN [None]
  - SCAR [None]
  - DEHYDRATION [None]
  - INFERTILITY FEMALE [None]
  - TREMOR [None]
  - VOMITING [None]
  - BILIARY COLIC [None]
